FAERS Safety Report 25479261 (Version 1)
Quarter: 2025Q2

REPORT INFORMATION
  Report Type: Spontaneous
  Country: GB (occurrence: GB)
  Receive Date: 20250625
  Receipt Date: 20250625
  Transmission Date: 20250716
  Serious: Yes (Other)
  Sender: AUROBINDO
  Company Number: GB-MHRA-MED-202506111135486000-RHBGM

PATIENT
  Age: 28 Year
  Sex: Female
  Weight: 60 kg

DRUGS (1)
  1. TERBINAFINE [Suspect]
     Active Substance: TERBINAFINE
     Indication: Adverse drug reaction
     Route: 065
     Dates: end: 20250406

REACTIONS (2)
  - Mechanical urticaria [Recovered/Resolved]
  - Urticaria thermal [Recovered/Resolved]

NARRATIVE: CASE EVENT DATE: 20250401
